FAERS Safety Report 9910108 (Version 1)
Quarter: 2014Q1

REPORT INFORMATION
  Report Type: Spontaneous
  Country: US (occurrence: None)
  Receive Date: 20140212
  Receipt Date: 20140212
  Transmission Date: 20141002
  Serious: Yes (Other)
  Sender: FDA-Public Use
  Company Number: 001666200A

PATIENT
  Age: 44 Year
  Sex: Female

DRUGS (4)
  1. MB * ANTIOXIDANT DAY CREME SPF 20 [Suspect]
     Dosage: TWICE DAILY DERMAL
     Dates: start: 20131003, end: 20131115
  2. MB* SKIN BRIGHTENING DECOLLETE+NECK TREATMENT SPF 15 [Suspect]
     Dosage: TWICE DAILY DERMAL
     Dates: start: 20131003, end: 20131115
  3. FLINTSTONE CHEWABLE VITAMINS [Concomitant]
  4. SHEER COVER PRODUCTS [Concomitant]

REACTIONS (5)
  - Eye irritation [None]
  - Eye swelling [None]
  - Cyst [None]
  - Carbuncle [None]
  - Eye disorder [None]
